FAERS Safety Report 5038973-9 (Version None)
Quarter: 2006Q2

REPORT INFORMATION
  Report Type: 
  Country: None (occurrence: None)
  Receive Date: 20060601
  Receipt Date: 20060104
  Transmission Date: 20061013
  Serious: No
  Sender: FDA-Public Use
  Company Number: 2006PV006497

PATIENT
  Age: 48 Year
  Sex: Female

DRUGS (5)
  1. BYETTA [Suspect]
     Indication: DIABETES MELLITUS NON-INSULIN-DEPENDENT
     Dosage: 5 MCG; BID; SC
     Route: 058
     Dates: start: 20051201
  2. LANTUS [Concomitant]
  3. PRILOSEC [Concomitant]
  4. MORPHINE [Concomitant]
  5. PHENERGAN HCL [Concomitant]

REACTIONS (5)
  - ABDOMINAL DISTENSION [None]
  - FLATULENCE [None]
  - NON-CARDIAC CHEST PAIN [None]
  - STOMACH DISCOMFORT [None]
  - WEIGHT DECREASED [None]
